FAERS Safety Report 13905962 (Version 2)
Quarter: 2017Q3

REPORT INFORMATION
  Report Type: Spontaneous
  Country: DE (occurrence: DE)
  Receive Date: 20170825
  Receipt Date: 20170928
  Transmission Date: 20171127
  Serious: Yes (Death, Hospitalization, Disabling, Other)
  Sender: FDA-Public Use
  Company Number: DE-009507513-1708DEU010716

PATIENT
  Age: 71 Year
  Sex: Male
  Weight: 150 kg

DRUGS (12)
  1. ACTRAPID [Concomitant]
     Active Substance: INSULIN HUMAN
  2. KEYTRUDA [Suspect]
     Active Substance: PEMBROLIZUMAB
     Indication: METASTATIC MALIGNANT MELANOMA
     Dosage: 2 MG/KG BODY WEIGHT
     Dates: start: 20151124, end: 20151124
  3. TAFINLAR [Concomitant]
     Active Substance: DABRAFENIB MESYLATE
     Indication: METASTATIC MALIGNANT MELANOMA
     Dosage: UNK
     Dates: start: 20151126
  4. LANTUS INSULINE [Concomitant]
  5. DIGIMERCK [Concomitant]
     Active Substance: DIGITOXIN
  6. RAMIPRIL. [Concomitant]
     Active Substance: RAMIPRIL
  7. PREDNISOLONE. [Concomitant]
     Active Substance: PREDNISOLONE
     Route: 048
  8. MEKINIST [Concomitant]
     Active Substance: TRAMETINIB DIMETHYL SULFOXIDE
     Indication: METASTATIC MALIGNANT MELANOMA
     Dosage: UNK
     Dates: start: 20151126
  9. METOHEXAL [Concomitant]
     Active Substance: METOPROLOL SUCCINATE
  10. ALLOPURINOL. [Concomitant]
     Active Substance: ALLOPURINOL
  11. MARCUMAR [Concomitant]
     Active Substance: PHENPROCOUMON
  12. SPASMEX [Concomitant]
     Active Substance: TROSPIUM CHLORIDE

REACTIONS (7)
  - Sudden cardiac death [Fatal]
  - Gastroenteritis [Unknown]
  - Urinary tract infection bacterial [Unknown]
  - Condition aggravated [Recovering/Resolving]
  - Acute prerenal failure [Unknown]
  - Overdose [Unknown]
  - Off label use [Unknown]

NARRATIVE: CASE EVENT DATE: 20151124
